FAERS Safety Report 14667932 (Version 2)
Quarter: 2018Q1

REPORT INFORMATION
  Report Type: Report from Study
  Country: CO (occurrence: CO)
  Receive Date: 20180322
  Receipt Date: 20180327
  Transmission Date: 20180509
  Serious: Yes (Hospitalization)
  Sender: FDA-Public Use
  Company Number: PHHY2018CO045954

PATIENT
  Sex: Male

DRUGS (2)
  1. REVOLADE [Suspect]
     Active Substance: ELTROMBOPAG
     Indication: APLASTIC ANAEMIA
     Dosage: 25 MG, QD
     Route: 048
     Dates: start: 20170804
  2. REVOLADE [Suspect]
     Active Substance: ELTROMBOPAG
     Dosage: 125 MG, QD
     Route: 048

REACTIONS (6)
  - Dizziness [Unknown]
  - Haemoglobin decreased [Unknown]
  - Chest pain [Unknown]
  - Pulmonary mass [Unknown]
  - Pyrexia [Unknown]
  - Aplastic anaemia [Not Recovered/Not Resolved]
